FAERS Safety Report 9145459 (Version 1)
Quarter: 2013Q1

REPORT INFORMATION
  Report Type: Spontaneous
  Country: US (occurrence: None)
  Receive Date: 20130226
  Receipt Date: 20130226
  Transmission Date: 20140127
  Serious: Yes (Death, Hospitalization)
  Sender: FDA-Public Use
  Company Number: None

PATIENT
  Sex: Male
  Weight: 56.8 kg

DRUGS (6)
  1. BUSULFAN [Suspect]
  2. CYCLOPHOSPHAMIDE [Suspect]
  3. CYCLOSPORINE [Suspect]
  4. ATGAM [Suspect]
  5. METHOTREXATE [Suspect]
  6. TACROLIMUS [Suspect]

REACTIONS (6)
  - Respiratory distress [None]
  - Renal failure [None]
  - Ascites [None]
  - Hypotension [None]
  - Venoocclusive disease [None]
  - Blood lactic acid increased [None]
